FAERS Safety Report 5225856-4 (Version None)
Quarter: 2007Q1

REPORT INFORMATION
  Report Type: 
  Country: None (occurrence: None)
  Receive Date: 20070131
  Receipt Date: 20070131
  Transmission Date: 20070707
  Serious: No
  Sender: FDA-Public Use
  Company Number: None

PATIENT
  Age: 44 Year
  Sex: Female
  Weight: 82 kg

DRUGS (1)
  1. CEFAZOLIN [Suspect]
     Indication: ARTHRITIS INFECTIVE
     Dosage: 2 GM Q 8H IV BOLUS
     Route: 040
     Dates: start: 20070103, end: 20070129

REACTIONS (2)
  - EYE SWELLING [None]
  - URTICARIA [None]
